FAERS Safety Report 19466854 (Version 3)
Quarter: 2022Q4

REPORT INFORMATION
  Report Type: Report from Study
  Country: US (occurrence: US)
  Receive Date: 20210628
  Receipt Date: 20221101
  Transmission Date: 20230113
  Serious: Yes (Hospitalization, Other)
  Sender: FDA-Public Use
  Company Number: US-ABBVIE-21K-163-3932353-00

PATIENT
  Sex: Male

DRUGS (2)
  1. IMBRUVICA [Suspect]
     Active Substance: IBRUTINIB
     Indication: Chronic lymphocytic leukaemia
     Route: 048
     Dates: start: 20210520
  2. IMBRUVICA [Suspect]
     Active Substance: IBRUTINIB
     Indication: Chronic lymphocytic leukaemia
     Route: 048

REACTIONS (11)
  - Chest pain [Unknown]
  - Lung neoplasm malignant [Unknown]
  - Wheezing [Unknown]
  - Pulmonary mass [Unknown]
  - White blood cell count increased [Unknown]
  - Blood glucose increased [Unknown]
  - Feeling cold [Unknown]
  - Oropharyngeal pain [Unknown]
  - Haemoglobin decreased [Unknown]
  - Muscle spasms [Unknown]
  - Cough [Unknown]

NARRATIVE: CASE EVENT DATE: 20210101
